FAERS Safety Report 17025544 (Version 1)
Quarter: 2019Q4

REPORT INFORMATION
  Report Type: Spontaneous
  Country: FK (occurrence: FK)
  Receive Date: 20191009
  Receipt Date: 20191009
  Transmission Date: 20200122
  Serious: Yes (Hospitalization)
  Sender: FDA-Public Use
  Company Number: None

PATIENT
  Age: 53 Year
  Sex: Female

DRUGS (9)
  1. PERMETHRIN. [Concomitant]
     Active Substance: PERMETHRIN
  2. SYNTHROID [Concomitant]
     Active Substance: LEVOTHYROXINE SODIUM
  3. ZOLPIDEM [Concomitant]
     Active Substance: ZOLPIDEM TARTRATE
  4. PENICILLIN VK [Concomitant]
     Active Substance: PENICILLIN V POTASSIUM
  5. IBUPROFEN. [Concomitant]
     Active Substance: IBUPROFEN
  6. OXYCODONE/APAP [Concomitant]
     Active Substance: ACETAMINOPHEN\OXYCODONE HYDROCHLORIDE
  7. DICYCLOMINE [Concomitant]
     Active Substance: DICYCLOMINE HYDROCHLORIDE
  8. SPRYCEL [Suspect]
     Active Substance: DASATINIB
     Indication: CHRONIC MYELOID LEUKAEMIA
     Route: 048
     Dates: start: 20181022, end: 20191009
  9. AMOXICILLIN. [Concomitant]
     Active Substance: AMOXICILLIN

REACTIONS (1)
  - Gallbladder operation [None]

NARRATIVE: CASE EVENT DATE: 20190911
